FAERS Safety Report 5369031-1 (Version None)
Quarter: 2007Q2

REPORT INFORMATION
  Report Type: 
  Country: None (occurrence: None)
  Receive Date: 20070619
  Receipt Date: 20070619
  Transmission Date: 20071010
  Serious: Yes (Other)
  Sender: FDA-Public Use
  Company Number: None

PATIENT
  Age: 3 Year
  Sex: Male

DRUGS (1)
  1. PURELL ORIGINAL (ETHYL ALCOHOL) [Suspect]
     Dosage: ALL OF THE BOTTLE, ORAL
     Route: 048
     Dates: start: 20070606, end: 20070606

REACTIONS (2)
  - CONVULSION [None]
  - VICTIM OF CRIME [None]
